FAERS Safety Report 10046841 (Version 2)
Quarter: 2014Q2

REPORT INFORMATION
  Report Type: Spontaneous
  Country: NZ (occurrence: NZ)
  Receive Date: 20140331
  Receipt Date: 20140418
  Transmission Date: 20141212
  Serious: Yes (Other)
  Sender: FDA-Public Use
  Company Number: NZ-ELI_LILLY_AND_COMPANY-NZ201403006432

PATIENT
  Age: 28 Year
  Sex: Male

DRUGS (1)
  1. ZYPREXA RELPREVV [Suspect]
     Indication: PRODUCT USED FOR UNKNOWN INDICATION
     Dosage: 405 MG, UNKNOWN
     Route: 030
     Dates: start: 20140319

REACTIONS (11)
  - Heart rate decreased [Not Recovered/Not Resolved]
  - Cold sweat [Unknown]
  - Fall [Unknown]
  - Sedation [Unknown]
  - Dysarthria [Unknown]
  - Posture abnormal [Unknown]
  - Blood pressure decreased [Not Recovered/Not Resolved]
  - Agitation [Unknown]
  - Hypotension [Recovered/Resolved]
  - Gait disturbance [Unknown]
  - Irritability [Unknown]
